FAERS Safety Report 7635348-0 (Version None)
Quarter: 2011Q3

REPORT INFORMATION
  Report Type: 
  Country: None (occurrence: None)
  Receive Date: 20110726
  Receipt Date: 20110715
  Transmission Date: 20111222
  Serious: Yes (Other)
  Sender: FDA-Public Use
  Company Number: US-AMGEN-USASP2011036258

PATIENT
  Age: 10 Year
  Sex: Female

DRUGS (1)
  1. ENBREL [Suspect]
     Indication: BLOOD IMMUNOGLOBULIN D INCREASED
     Dosage: 25 MG, 2 TIMES/WK
     Dates: start: 20101112

REACTIONS (3)
  - EMOTIONAL DISORDER [None]
  - AGGRESSION [None]
  - MALAISE [None]
